FAERS Safety Report 14259714 (Version 4)
Quarter: 2019Q1

REPORT INFORMATION
  Report Type: Spontaneous
  Country: US (occurrence: US)
  Receive Date: 20171207
  Receipt Date: 20190121
  Transmission Date: 20190417
  Serious: Yes (Other)
  Sender: FDA-Public Use
  Company Number: US-DSJP-DSU-2017-148125

PATIENT

DRUGS (5)
  1. BENICAR [Suspect]
     Active Substance: OLMESARTAN MEDOXOMIL
     Dosage: 40 MG, QD
     Route: 048
     Dates: start: 20090708
  2. BENICAR [Suspect]
     Active Substance: OLMESARTAN MEDOXOMIL
     Indication: PRODUCT USED FOR UNKNOWN INDICATION
     Dosage: 20 MG, QD
     Route: 048
     Dates: end: 20110131
  3. NEXIUM [Suspect]
     Active Substance: ESOMEPRAZOLE MAGNESIUM
     Indication: GASTROOESOPHAGEAL REFLUX DISEASE
  4. BENICAR [Suspect]
     Active Substance: OLMESARTAN MEDOXOMIL
     Dosage: 40 MG, QD
     Route: 048
     Dates: start: 20110131
  5. BENICAR HCT [Suspect]
     Active Substance: HYDROCHLOROTHIAZIDE\OLMESARTAN MEDOXOMIL
     Indication: PRODUCT USED FOR UNKNOWN INDICATION
     Dosage: 40-12.5 MG, QD
     Route: 048
     Dates: start: 20101215, end: 20140224

REACTIONS (10)
  - Sprue-like enteropathy [Recovering/Resolving]
  - Oesophageal spasm [Recovered/Resolved]
  - Irritable bowel syndrome [Not Recovered/Not Resolved]
  - Presbyoesophagus [Unknown]
  - Hiatus hernia [Unknown]
  - Diverticulitis [Unknown]
  - Impaired gastric emptying [Not Recovered/Not Resolved]
  - Diarrhoea [Unknown]
  - Diverticulum [Unknown]
  - Clonus [Unknown]

NARRATIVE: CASE EVENT DATE: 20110608
